FAERS Safety Report 23252302 (Version 1)
Quarter: 2023Q4

REPORT INFORMATION
  Report Type: Report from Study
  Country: PE (occurrence: PE)
  Receive Date: 20231201
  Receipt Date: 20231201
  Transmission Date: 20240110
  Serious: Yes (Other)
  Sender: FDA-Public Use
  Company Number: PE-AstraZeneca-2023A269880

PATIENT
  Age: 114 Day
  Sex: Female

DRUGS (3)
  1. SYNAGIS [Suspect]
     Active Substance: PALIVIZUMAB
     Indication: Respiratory syncytial virus infection
     Dosage: 15.0MG/KG, UNKNOWN
     Route: 030
     Dates: start: 20230820
  2. SYNAGIS [Suspect]
     Active Substance: PALIVIZUMAB
     Dosage: 15.0MG/KG, UNKNOWN
     Route: 030
     Dates: start: 20230920
  3. SYNAGIS [Suspect]
     Active Substance: PALIVIZUMAB
     Dosage: 15.0MG/KG, UNKNOWN
     Route: 030
     Dates: start: 20231021

REACTIONS (1)
  - Viral infection [Not Recovered/Not Resolved]

NARRATIVE: CASE EVENT DATE: 20231103
